FAERS Safety Report 5659110-3 (Version None)
Quarter: 2008Q1

REPORT INFORMATION
  Report Type: 
  Country: None (occurrence: None)
  Receive Date: 20080219
  Receipt Date: 20071218
  Transmission Date: 20080703
  Serious: No
  Sender: FDA-Public Use
  Company Number: WAES 0709USA02103

PATIENT
  Age: 55 Year
  Sex: Female
  Weight: 46.2669 kg

DRUGS (3)
  1. JANUVIA [Suspect]
     Indication: TYPE 2 DIABETES MELLITUS
     Dosage: 100 MG/DAILY/PO
     Route: 048
     Dates: start: 20070601, end: 20070902
  2. GLUCOPHAGE [Concomitant]
  3. GLYBURIDE [Concomitant]

REACTIONS (6)
  - BLOOD GLUCOSE INCREASED [None]
  - NASAL CONGESTION [None]
  - NIGHT SWEATS [None]
  - RHINORRHOEA [None]
  - SALIVARY GLAND ENLARGEMENT [None]
  - THYROIDITIS SUBACUTE [None]
